FAERS Safety Report 6522597-8 (Version None)
Quarter: 2009Q4

REPORT INFORMATION
  Report Type: 
  Country: None (occurrence: None)
  Receive Date: 20091230
  Receipt Date: 20091221
  Transmission Date: 20100525
  Serious: Yes (Hospitalization)
  Sender: FDA-Public Use
  Company Number: US-AMGEN-QUU378897

PATIENT
  Sex: Male
  Weight: 103.6 kg

DRUGS (7)
  1. ENBREL [Suspect]
     Indication: RHEUMATOID ARTHRITIS
     Route: 058
     Dates: start: 20060801
  2. METHOTREXATE [Concomitant]
     Route: 048
  3. ASPIRIN [Concomitant]
  4. LIPITOR [Concomitant]
  5. LISINOPRIL [Concomitant]
  6. FUROSEMIDE [Concomitant]
  7. TRAMADOL HCL [Concomitant]

REACTIONS (4)
  - FALL [None]
  - INCISION SITE ERYTHEMA [None]
  - OPEN FRACTURE [None]
  - TOOTH ABSCESS [None]
